FAERS Safety Report 18315991 (Version 1)
Quarter: 2020Q3

REPORT INFORMATION
  Report Type: Spontaneous
  Country: DE (occurrence: DE)
  Receive Date: 20200927
  Receipt Date: 20200927
  Transmission Date: 20201103
  Serious: Yes (Other)
  Sender: FDA-Public Use
  Company Number: DE-TEVA-2020-DE-1831403

PATIENT
  Age: 56 Year
  Sex: Male

DRUGS (2)
  1. ASS 100 [Suspect]
     Active Substance: ASPIRIN
     Dosage: 100 MILLIGRAM DAILY; 1?0?0?0
  2. CLOPIDOGREL [Suspect]
     Active Substance: CLOPIDOGREL BISULFATE
     Dosage: 75 MILLIGRAM DAILY; 1?0?0?0

REACTIONS (2)
  - Diarrhoea haemorrhagic [Unknown]
  - Haematochezia [Unknown]

NARRATIVE: CASE EVENT DATE: 20200722
